FAERS Safety Report 11283060 (Version 1)
Quarter: 2015Q3

REPORT INFORMATION
  Report Type: Spontaneous
  Country: US (occurrence: None)
  Receive Date: 20150717
  Receipt Date: 20150717
  Transmission Date: 20151125
  Serious: No
  Sender: FDA-Public Use
  Company Number: None

PATIENT
  Age: 50 Year
  Sex: Female

DRUGS (9)
  1. MIRAPEX [Concomitant]
     Active Substance: PRAMIPEXOLE DIHYDROCHLORIDE
  2. TRACLEER [Suspect]
     Active Substance: BOSENTAN
     Indication: HEART DISEASE CONGENITAL
     Route: 048
     Dates: start: 201409
  3. WARFARIN [Concomitant]
     Active Substance: WARFARIN
  4. TREPROSTINIL [Concomitant]
     Active Substance: TREPROSTINIL
  5. SILDENAFIL. [Concomitant]
     Active Substance: SILDENAFIL
  6. TORSEMIDE. [Concomitant]
     Active Substance: TORSEMIDE
  7. KLOR-CON [Concomitant]
     Active Substance: POTASSIUM CHLORIDE
  8. CHLOROTHIAZIDE. [Concomitant]
     Active Substance: CHLOROTHIAZIDE
  9. SPIRONOLACTONE. [Concomitant]
     Active Substance: SPIRONOLACTONE

REACTIONS (4)
  - Eosinophilia [None]
  - Occult blood positive [None]
  - Transaminases increased [None]
  - Hepatitis A antibody positive [None]

NARRATIVE: CASE EVENT DATE: 20150715
